FAERS Safety Report 17617980 (Version 1)
Quarter: 2020Q2

REPORT INFORMATION
  Report Type: Spontaneous
  Country: US (occurrence: US)
  Receive Date: 20200402
  Receipt Date: 20200402
  Transmission Date: 20200713
  Serious: No
  Sender: FDA-Public Use
  Company Number: US-ROCHE-2353027

PATIENT
  Age: 74 Year
  Sex: Male
  Weight: 86.26 kg

DRUGS (1)
  1. ERIVEDGE [Suspect]
     Active Substance: VISMODEGIB
     Indication: BASAL CELL CARCINOMA
     Route: 048
     Dates: start: 20190630

REACTIONS (5)
  - Intentional product use issue [Unknown]
  - Constipation [Not Recovered/Not Resolved]
  - Dysuria [Not Recovered/Not Resolved]
  - Rectal spasm [Not Recovered/Not Resolved]
  - Proctalgia [Not Recovered/Not Resolved]

NARRATIVE: CASE EVENT DATE: 20190630
